FAERS Safety Report 18898699 (Version 1)
Quarter: 2021Q1

REPORT INFORMATION
  Report Type: Report from Study
  Country: FR (occurrence: FR)
  Receive Date: 20210216
  Receipt Date: 20210216
  Transmission Date: 20210420
  Serious: Yes (Other)
  Sender: FDA-Public Use
  Company Number: FR-PFIZER INC-2021148946

PATIENT
  Age: 15 Year
  Sex: Male

DRUGS (4)
  1. CYTARABINE. [Suspect]
     Active Substance: CYTARABINE
     Dosage: 1ST INTENSIFICATION: HD ARA?C 3 G/M2/12H ? D1 TO 6
  2. CYTARABINE. [Suspect]
     Active Substance: CYTARABINE
     Indication: ACUTE MYELOID LEUKAEMIA
     Dosage: INDUCTION: CONTINUOUS 100 MG/M2/D ? D1 TO 2
  3. ETOPOSIDE. [Concomitant]
     Active Substance: ETOPOSIDE
     Indication: ACUTE MYELOID LEUKAEMIA
     Dosage: 150 MG/M2/D ? D6 TO 8
  4. CYTARABINE. [Suspect]
     Active Substance: CYTARABINE
     Dosage: INDUCTION: BOLUS 100 MG/M2/12H ? D3 TO 8

REACTIONS (1)
  - Nephropathy toxic [Unknown]
